FAERS Safety Report 17798312 (Version 2)
Quarter: 2020Q2

REPORT INFORMATION
  Report Type: Spontaneous
  Country: PL (occurrence: PL)
  Receive Date: 20200518
  Receipt Date: 20200604
  Transmission Date: 20200714
  Serious: Yes (Other)
  Sender: FDA-Public Use
  Company Number: PL-PFIZER INC-2020195183

PATIENT
  Age: 9 Year
  Sex: Male

DRUGS (12)
  1. DOXORUBICIN HCL [Suspect]
     Active Substance: DOXORUBICIN HYDROCHLORIDE
     Dosage: 160 MG/M2
  2. IRINOTECAN HCL [Suspect]
     Active Substance: IRINOTECAN HYDROCHLORIDE
     Dosage: 65 MG/M2
  3. CYCLOPHOSPHAMIDE. [Suspect]
     Active Substance: CYCLOPHOSPHAMIDE
     Dosage: 1000 MG/M2
  4. IDARUBICIN HCL [Suspect]
     Active Substance: IDARUBICIN HYDROCHLORIDE
     Dosage: 80 MG/M2
  5. TOPOTECAN [Suspect]
     Active Substance: TOPOTECAN HYDROCHLORIDE
     Dosage: 28 MG/M2
  6. ETOPOSIDE. [Suspect]
     Active Substance: ETOPOSIDE
     Dosage: 2000 MG/M2
     Route: 048
  7. ETOPOSIDE. [Suspect]
     Active Substance: ETOPOSIDE
     Dosage: 3600 MG/M2
     Route: 042
  8. ACTINOMYCIN C [Suspect]
     Active Substance: CACTINOMYCIN
     Dosage: 3 MG/M2
  9. VINCRISTINE [Suspect]
     Active Substance: VINCRISTINE
     Dosage: 16.5 MG/M2
  10. CARBOPLATIN. [Suspect]
     Active Substance: CARBOPLATIN
     Dosage: 6600 MG/M2
  11. IFOSFAMIDE. [Suspect]
     Active Substance: IFOSFAMIDE
     Dosage: 54000 MG/M2
  12. TROFOSFAMIDE [Suspect]
     Active Substance: TROFOSFAMIDE
     Dosage: 12000 MG/M2

REACTIONS (4)
  - Hyperleukocytosis [Unknown]
  - Hepatosplenomegaly [Unknown]
  - Thrombocytopenia [Unknown]
  - Anaemia [Unknown]
